FAERS Safety Report 8445307-6 (Version None)
Quarter: 2012Q2

REPORT INFORMATION
  Report Type: 
  Country: None (occurrence: None)
  Receive Date: 20120618
  Receipt Date: 20120613
  Transmission Date: 20120825
  Serious: Yes (Hospitalization, Other)
  Sender: FDA-Public Use
  Company Number: US-JNJFOC-20120600515

PATIENT
  Sex: Female
  Weight: 73.94 kg

DRUGS (17)
  1. PRAVASTAN [Concomitant]
     Indication: BLOOD CHOLESTEROL
     Route: 048
     Dates: start: 20080101
  2. METOLAZONE [Concomitant]
     Indication: DIURETIC THERAPY
     Route: 048
     Dates: start: 20120301
  3. POTASSIUM ACETATE [Concomitant]
     Indication: BLOOD POTASSIUM DECREASED
     Route: 048
     Dates: start: 20090101
  4. XARELTO [Suspect]
     Indication: ATRIAL FIBRILLATION
     Route: 048
     Dates: start: 20120514
  5. METOPROLOL SUCCINATE [Concomitant]
     Indication: CARDIAC DISORDER
     Route: 048
     Dates: start: 20050101
  6. TRAMADOL HCL [Suspect]
     Indication: HEADACHE
     Route: 048
     Dates: start: 20120201
  7. SYMBICORT [Concomitant]
     Indication: CHRONIC OBSTRUCTIVE PULMONARY DISEASE
     Route: 048
     Dates: start: 20110101
  8. DILANTIN [Concomitant]
     Indication: CONVULSION
     Route: 048
     Dates: start: 20050101
  9. ASPIRIN [Concomitant]
     Indication: THROMBOSIS PROPHYLAXIS
     Route: 048
     Dates: start: 20050101
  10. IMDUR [Concomitant]
     Indication: CARDIAC DISORDER
     Route: 048
  11. XANAX [Concomitant]
     Indication: ANXIETY
     Route: 048
     Dates: start: 20120101
  12. ALL OTHER MEDICATION [Concomitant]
     Route: 048
     Dates: start: 20120101
  13. SPIRIVA [Concomitant]
     Indication: CHRONIC OBSTRUCTIVE PULMONARY DISEASE
     Route: 048
     Dates: start: 20120101
  14. ALLOPURINOL [Concomitant]
     Indication: GOUT
     Route: 048
     Dates: start: 20120101
  15. CALCIUM [Concomitant]
     Route: 048
     Dates: start: 20080101
  16. LASIX [Concomitant]
     Indication: DIURETIC THERAPY
     Route: 048
     Dates: start: 20120101
  17. DIGOXIN [Concomitant]
     Indication: CARDIAC DISORDER
     Route: 048
     Dates: start: 20120101

REACTIONS (3)
  - EPISTAXIS [None]
  - BLOOD POTASSIUM DECREASED [None]
  - ADVERSE EVENT [None]
